FAERS Safety Report 6563757-X (Version None)
Quarter: 2010Q1

REPORT INFORMATION
  Report Type: 
  Country: None (occurrence: None)
  Receive Date: 20100130
  Receipt Date: 20091226
  Transmission Date: 20100710
  Serious: No
  Sender: FDA-Public Use
  Company Number: US-ABBOTT-09P-163-0616222-00

PATIENT
  Sex: Female

DRUGS (10)
  1. HUMIRA [Suspect]
     Indication: RHEUMATOID ARTHRITIS
     Dates: start: 20090804
  2. RIBAVIRIN [Concomitant]
     Indication: HEPATITIS C
     Dates: start: 20090301, end: 20091125
  3. INTERFERON [Concomitant]
     Indication: HEPATITIS C
     Dates: start: 20090301, end: 20091125
  4. EFFEXOR [Concomitant]
     Indication: DRUG USE FOR UNKNOWN INDICATION
  5. ABILIFY [Concomitant]
     Indication: DRUG USE FOR UNKNOWN INDICATION
  6. OXYCONTIN [Concomitant]
     Indication: DRUG USE FOR UNKNOWN INDICATION
  7. HYDROCODONE [Concomitant]
     Indication: DRUG USE FOR UNKNOWN INDICATION
  8. VALIUM [Concomitant]
     Indication: DRUG USE FOR UNKNOWN INDICATION
  9. LIDODERM [Concomitant]
     Indication: DRUG USE FOR UNKNOWN INDICATION
     Dosage: PATCHES
  10. TRAZODONE [Concomitant]
     Indication: SLEEP DISORDER THERAPY

REACTIONS (4)
  - DRUG INEFFECTIVE [None]
  - FATIGUE [None]
  - INJECTION SITE NODULE [None]
  - INJECTION SITE PAIN [None]
